FAERS Safety Report 5059758-3 (Version None)
Quarter: 2006Q3

REPORT INFORMATION
  Report Type: 
  Country: None (occurrence: None)
  Receive Date: 20060718
  Receipt Date: 20060705
  Transmission Date: 20061208
  Serious: Yes (Other)
  Sender: FDA-Public Use
  Company Number: 200612695BWH

PATIENT
  Age: 56 Year
  Sex: Female

DRUGS (3)
  1. AVELOX [Suspect]
     Indication: NUCLEAR MAGNETIC RESONANCE IMAGING BRAIN
     Dosage: 400 MG, ORAL
     Route: 048
  2. PREDNISONE [Concomitant]
  3. LORAZEPAM [Concomitant]

REACTIONS (6)
  - ARTHRALGIA [None]
  - CONDITION AGGRAVATED [None]
  - FATIGUE [None]
  - OEDEMA PERIPHERAL [None]
  - PARKINSON'S DISEASE [None]
  - UNEVALUABLE EVENT [None]
